FAERS Safety Report 5207671-0 (Version None)
Quarter: 2007Q1

REPORT INFORMATION
  Report Type: 
  Country: None (occurrence: None)
  Receive Date: 20070112
  Receipt Date: 20070108
  Transmission Date: 20070707
  Serious: Yes (Hospitalization)
  Sender: FDA-Public Use
  Company Number: SE-PFIZER INC-2006153698

PATIENT
  Sex: Male

DRUGS (5)
  1. VIAGRA [Suspect]
     Indication: PAIN
     Route: 048
     Dates: start: 20061028, end: 20061028
  2. VIAGRA [Suspect]
     Indication: PSYCHOSOMATIC DISEASE
  3. VIAGRA [Suspect]
     Indication: UROGENITAL DISORDER
  4. RELIFEX [Suspect]
     Indication: UROGENITAL DISORDER
     Route: 048
     Dates: start: 20061017, end: 20061028
  5. RELIFEX [Suspect]
     Indication: VERTEBRAL INJURY

REACTIONS (1)
  - ANGIOEDEMA [None]
